FAERS Safety Report 5948992-3 (Version None)
Quarter: 2008Q4

REPORT INFORMATION
  Report Type: 
  Country: None (occurrence: None)
  Receive Date: 20081111
  Receipt Date: 20081103
  Transmission Date: 20090506
  Serious: Yes (Hospitalization, Other)
  Sender: FDA-Public Use
  Company Number: US-ELI_LILLY_AND_COMPANY-US200809005100

PATIENT
  Age: 58 Year
  Sex: Male
  Weight: 95.238 kg

DRUGS (28)
  1. BYETTA [Suspect]
     Indication: TYPE 2 DIABETES MELLITUS
     Dosage: 5 UG, 2/D
     Route: 058
     Dates: start: 20040101, end: 20080801
  2. ALLOPURINOL [Concomitant]
     Dosage: 300 MG, DAILY (1/D)
     Route: 048
  3. ASMANEX TWISTHALER [Concomitant]
     Dosage: 220 UG, 2/D
     Route: 055
  4. ASPIRIN [Concomitant]
     Dosage: 81 MG, DAILY (1/D)
     Route: 048
  5. AVODART [Concomitant]
     Dosage: 0.5 MG, EACH EVENING
     Route: 048
  6. BUSPAR [Concomitant]
     Dosage: 5 MG, 2/D
     Route: 048
  7. BUPROPION HYDROCHLORIDE [Concomitant]
     Dosage: 100 MG, 2/D
     Route: 048
  8. CALCIUM [Concomitant]
     Dosage: 500 MG, 3/D
     Route: 048
  9. CLARITIN [Concomitant]
     Dosage: 5 MG, DAILY (1/D)
     Route: 048
  10. CLOPIDOGREL [Concomitant]
     Dosage: 75 MG, DAILY (1/D)
     Route: 048
  11. COLCHICINE [Concomitant]
     Dosage: 0.5 MG, 2/D
     Route: 048
  12. COREG [Concomitant]
     Dosage: 25 MG, 2/D
     Route: 048
  13. CRESTOR [Concomitant]
     Dosage: 20 MG, DAILY (1/D)
     Route: 048
  14. FOLIC ACID [Concomitant]
     Dosage: 0.8 MG, DAILY (1/D)
     Route: 048
  15. LASIX [Concomitant]
     Dosage: 40 MG, DAILY (1/D)
     Route: 048
  16. GLIMEPIRIDE [Concomitant]
     Dosage: 4 MG, DAILY (1/D)
     Route: 048
  17. ISOSORBIDE DINITRATE [Concomitant]
     Dosage: 40 MG, DAILY (1/D)
     Route: 048
  18. LEXAPRO [Concomitant]
     Dosage: 20 MG, DAILY (1/D)
     Route: 048
  19. LYRICA [Concomitant]
     Dosage: 100 MG, 2/D
     Route: 048
  20. METOLAZONE [Concomitant]
     Dosage: 5 MG, 3/W
     Route: 048
  21. MULTI-VITAMIN [Concomitant]
     Dosage: UNK, DAILY (1/D)
     Route: 048
  22. QUINAPRIL [Concomitant]
     Dosage: 20 MG, 2/D
     Route: 048
  23. DARVOCET-N 100 [Concomitant]
     Dosage: UNK, 4/D
     Route: 048
  24. SPIRONOLACTONE [Concomitant]
     Dosage: 25 MG, DAILY (1/D)
     Route: 048
  25. TIKOSYN [Concomitant]
     Dosage: 375 MG, 2/D
     Route: 048
  26. TRAMADOL HCL [Concomitant]
     Dosage: 50 MG, 4/D
     Route: 048
  27. VITAMIN B COMPLEX CAP [Concomitant]
     Dosage: UNK, DAILY (1/D)
     Route: 048
  28. ZINC GLUCONATE [Concomitant]
     Dosage: 100 MG, AS NEEDED
     Route: 065

REACTIONS (2)
  - PANCREATITIS ACUTE [None]
  - WEIGHT DECREASED [None]
